FAERS Safety Report 12407927 (Version 1)
Quarter: 2016Q2

REPORT INFORMATION
  Report Type: Spontaneous
  Country: US (occurrence: US)
  Receive Date: 20160526
  Receipt Date: 20160526
  Transmission Date: 20160815
  Serious: No
  Sender: FDA-Public Use
  Company Number: US-B.I. PHARMACEUTICALS,INC./RIDGEFIELD-2016-BI-29611BP

PATIENT
  Age: 77 Year
  Sex: Male

DRUGS (3)
  1. PERFORM [Concomitant]
     Active Substance: MENTHOL
     Indication: EMPHYSEMA
     Dosage: 2 ANZ
     Route: 055
     Dates: start: 2012
  2. DEMEROL [Concomitant]
     Active Substance: MEPERIDINE HYDROCHLORIDE
     Indication: EMPHYSEMA
     Dosage: 2 ANZ
     Route: 048
     Dates: start: 2012
  3. SPIRIVA [Suspect]
     Active Substance: TIOTROPIUM BROMIDE MONOHYDRATE
     Indication: EMPHYSEMA
     Dosage: 2 ANZ
     Route: 055
     Dates: start: 2015, end: 201603

REACTIONS (3)
  - Dyspnoea [Not Recovered/Not Resolved]
  - Dyspnoea [Not Recovered/Not Resolved]
  - General physical health deterioration [Not Recovered/Not Resolved]

NARRATIVE: CASE EVENT DATE: 201601
